FAERS Safety Report 4662054-7 (Version None)
Quarter: 2005Q2

REPORT INFORMATION
  Report Type: 
  Country: None (occurrence: None)
  Receive Date: 20050512
  Receipt Date: 20050512
  Transmission Date: 20051028
  Serious: Yes (Hospitalization)
  Sender: FDA-Public Use
  Company Number: None

PATIENT
  Age: 51 Year
  Sex: Female
  Weight: 62.5964 kg

DRUGS (2)
  1. METOCLOPRAMIDE [Suspect]
     Indication: NAUSEA
     Dosage: 10MG  INJECTION
     Dates: start: 20050307, end: 20050307
  2. METOCLOPRAMIDE [Suspect]
     Indication: VOMITING
     Dosage: 10MG  INJECTION
     Dates: start: 20050307, end: 20050307

REACTIONS (2)
  - ASTHENIA [None]
  - EXTRAPYRAMIDAL DISORDER [None]
